FAERS Safety Report 8087249-4 (Version None)
Quarter: 2012Q1

REPORT INFORMATION
  Report Type: 
  Country: None (occurrence: None)
  Receive Date: 20120128
  Receipt Date: 20110516
  Transmission Date: 20120608
  Serious: No
  Sender: FDA-Public Use
  Company Number: US-ABBOTT-11P-163-0725827-00

PATIENT
  Age: 19 Year
  Sex: Female

DRUGS (3)
  1. UNKNOWN MEDICATIONS [Concomitant]
     Indication: PRODUCT USED FOR UNKNOWN INDICATION
  2. PREDNISONE TAB [Concomitant]
     Indication: CONDITION AGGRAVATED
  3. HUMIRA [Suspect]
     Indication: CROHN'S DISEASE
     Dates: start: 20090801, end: 20110401

REACTIONS (5)
  - WOUND [None]
  - FREQUENT BOWEL MOVEMENTS [None]
  - PSORIASIS [None]
  - STAPHYLOCOCCAL INFECTION [None]
  - RASH [None]
